FAERS Safety Report 8131999-8 (Version None)
Quarter: 2012Q1

REPORT INFORMATION
  Report Type: 
  Country: None (occurrence: None)
  Receive Date: 20120207
  Receipt Date: 20120126
  Transmission Date: 20120608
  Serious: Yes (Other)
  Sender: FDA-Public Use
  Company Number: NSR_00485_2012

PATIENT
  Age: 42 Year
  Sex: Female

DRUGS (2)
  1. TRAMADOL HCL [Suspect]
     Indication: NEURALGIA
     Dosage: DF
  2. NORTRIPTYLINE HCL [Suspect]
     Indication: NEURALGIA
     Dosage: DF

REACTIONS (6)
  - HYPERREFLEXIA [None]
  - RESTLESSNESS [None]
  - MYOFASCIAL PAIN SYNDROME [None]
  - MENTAL STATUS CHANGES [None]
  - HYPERTENSION [None]
  - SEROTONIN SYNDROME [None]
